FAERS Safety Report 10991496 (Version 2)
Quarter: 2015Q2

REPORT INFORMATION
  Report Type: Spontaneous
  Country: US (occurrence: US)
  Receive Date: 20150406
  Receipt Date: 20150507
  Transmission Date: 20150821
  Serious: No
  Sender: FDA-Public Use
  Company Number: US-GLAXOSMITHKLINE-US2015045061

PATIENT
  Age: 77 Year
  Sex: Female

DRUGS (3)
  1. ALLI [Suspect]
     Active Substance: ORLISTAT
     Indication: WEIGHT LOSS DIET
     Dosage: UNK
  2. ALLI [Suspect]
     Active Substance: ORLISTAT
     Dosage: UNK
  3. ALLI [Suspect]
     Active Substance: ORLISTAT
     Dosage: UNK

REACTIONS (3)
  - Product quality issue [Unknown]
  - Drug ineffective [Unknown]
  - Frequent bowel movements [Recovered/Resolved]
